FAERS Safety Report 5692240-9 (Version None)
Quarter: 2008Q1

REPORT INFORMATION
  Report Type: 
  Country: None (occurrence: None)
  Receive Date: 20080331
  Receipt Date: 20080320
  Transmission Date: 20080703
  Serious: Yes (Hospitalization, Disabling)
  Sender: FDA-Public Use
  Company Number: CHNY2007FR03135

PATIENT
  Age: 7 Year
  Sex: Male
  Weight: 25 kg

DRUGS (1)
  1. SCOPODERM TTS (NCH)(HYOSCINE HYDROBROMIDE) TRANS-THERAPEUTIC-SYSTEM [Suspect]
     Indication: MOTION SICKNESS
     Dosage: 0.5 DF, TRANSDERMAL
     Route: 062

REACTIONS (4)
  - ANXIETY [None]
  - DEAFNESS NEUROSENSORY [None]
  - HYPOACUSIS [None]
  - WRONG TECHNIQUE IN DRUG USAGE PROCESS [None]
